FAERS Safety Report 20899432 (Version 1)
Quarter: 2022Q2

REPORT INFORMATION
  Report Type: Spontaneous
  Country: CN (occurrence: CN)
  Receive Date: 20220601
  Receipt Date: 20220601
  Transmission Date: 20220721
  Serious: Yes (Other)
  Sender: FDA-Public Use
  Company Number: None

PATIENT
  Age: 60 Year
  Sex: Female
  Weight: 50.9 kg

DRUGS (6)
  1. CYCLOPHOSPHAMIDE [Suspect]
     Active Substance: CYCLOPHOSPHAMIDE
     Indication: Breast cancer female
     Dosage: 500 MG/M2
     Route: 065
     Dates: start: 20220516, end: 20220516
  2. CYCLOPHOSPHAMIDE [Suspect]
     Active Substance: CYCLOPHOSPHAMIDE
     Dosage: 0.730000 G ONCE DAILY
     Route: 041
     Dates: start: 20220516, end: 20220516
  3. DOXORUBICIN HYDROCHLORIDE [Suspect]
     Active Substance: DOXORUBICIN HYDROCHLORIDE
     Indication: Breast cancer female
     Dosage: 40.000000 MG ONCE DAILY
     Route: 041
     Dates: start: 20220516, end: 20220516
  4. DOXORUBICIN HYDROCHLORIDE [Suspect]
     Active Substance: DOXORUBICIN HYDROCHLORIDE
     Dosage: 30 MG/M2
     Route: 065
     Dates: start: 20220516, end: 20220516
  5. SODIUM CHLORIDE [Suspect]
     Active Substance: SODIUM CHLORIDE
     Indication: Breast cancer female
     Dosage: 100.000000MG ONCE DAILY
     Route: 041
     Dates: start: 20220516, end: 20220516
  6. DEXTROSE [Suspect]
     Active Substance: DEXTROSE
     Indication: Breast cancer female
     Dosage: 500.000000ML ONCE DAILY
     Route: 041
     Dates: start: 20220516, end: 20220516

REACTIONS (3)
  - Nausea [Recovering/Resolving]
  - Vomiting [Recovering/Resolving]
  - Discomfort [Recovering/Resolving]

NARRATIVE: CASE EVENT DATE: 20220517
